FAERS Safety Report 6399475-0 (Version None)
Quarter: 2009Q4

REPORT INFORMATION
  Report Type: 
  Country: None (occurrence: None)
  Receive Date: 20091014
  Receipt Date: 20091006
  Transmission Date: 20100525
  Serious: Yes (Disabling)
  Sender: FDA-Public Use
  Company Number: PHHO2009NO10172

PATIENT
  Sex: Male

DRUGS (4)
  1. CERTICAN [Suspect]
     Indication: RENAL CELL CARCINOMA
     Dosage: 5 MG/DAY
     Route: 048
     Dates: start: 20090330, end: 20090415
  2. CERTICAN [Suspect]
     Dosage: 10 MG/DAY
     Route: 048
     Dates: start: 20090416, end: 20090428
  3. CERTICAN [Suspect]
     Dosage: 5 MG/DAY
     Route: 048
     Dates: start: 20090429
  4. FRAXIPARINE [Concomitant]
     Indication: DEEP VEIN THROMBOSIS
     Dosage: UNK
     Dates: start: 20081120

REACTIONS (5)
  - DYSPNOEA [None]
  - HAEMOPTYSIS [None]
  - LUNG INFILTRATION [None]
  - PNEUMONITIS [None]
  - VIRAL INFECTION [None]
